FAERS Safety Report 8817114 (Version 1)
Quarter: 2012Q4

REPORT INFORMATION
  Report Type: Spontaneous
  Country: US (occurrence: None)
  Receive Date: 20121003
  Receipt Date: 20121003
  Transmission Date: 20130627
  Serious: Yes (Hospitalization)
  Sender: FDA-Public Use
  Company Number: None

PATIENT
  Age: 55 Year
  Sex: Male

DRUGS (1)
  1. SIMVASTATIN [Suspect]
     Indication: HYPERLIPIDEMIA
     Dosage: 40 MG BEDTIME PO
     Route: 048
     Dates: start: 20091123, end: 20120816

REACTIONS (2)
  - Renal failure acute [None]
  - Rhabdomyolysis [None]
